FAERS Safety Report 4825704-8 (Version None)
Quarter: 2005Q4

REPORT INFORMATION
  Report Type: 
  Country: None (occurrence: None)
  Receive Date: 20051111
  Receipt Date: 20050912
  Transmission Date: 20060501
  Serious: Yes (Death, Other)
  Sender: FDA-Public Use
  Company Number: GB-BRISTOL-MYERS SQUIBB COMPANY-13108071

PATIENT
  Age: 14 Year
  Sex: Female

DRUGS (3)
  1. CISPLATIN [Suspect]
     Indication: OVARIAN CANCER
     Route: 042
  2. ETOPOSIDE [Suspect]
     Indication: OVARIAN CANCER
     Route: 042
  3. AMIFOSTINE [Suspect]
     Indication: OVARIAN CANCER

REACTIONS (9)
  - DEAFNESS [None]
  - DRUG TOXICITY [None]
  - MALIGNANT NEOPLASM PROGRESSION [None]
  - NEPHROPATHY TOXIC [None]
  - NEUROPATHY PERIPHERAL [None]
  - NEUROTOXICITY [None]
  - OTOTOXICITY [None]
  - RENAL FAILURE [None]
  - RENAL TUBULAR NECROSIS [None]
